FAERS Safety Report 15157498 (Version 2)
Quarter: 2018Q3

REPORT INFORMATION
  Report Type: Report from Study
  Country: IT (occurrence: IT)
  Receive Date: 20180718
  Receipt Date: 20180927
  Transmission Date: 20181010
  Serious: Yes (Hospitalization)
  Sender: FDA-Public Use
  Company Number: IT-TEVA-2018-IT-927812

PATIENT
  Age: 59 Year
  Sex: Female

DRUGS (3)
  1. PAROXETINE. [Suspect]
     Active Substance: PAROXETINE
     Route: 048
     Dates: start: 20180525, end: 20180525
  2. LETROZOLE. [Suspect]
     Active Substance: LETROZOLE
     Route: 048
     Dates: start: 20180525, end: 20180525
  3. METHOTREXATE. [Concomitant]
     Active Substance: METHOTREXATE
     Indication: RHEUMATOID ARTHRITIS
     Route: 065

REACTIONS (3)
  - Vomiting [Recovered/Resolved]
  - Agitation [Recovered/Resolved]
  - Drug abuse [Recovered/Resolved]

NARRATIVE: CASE EVENT DATE: 20180525
